FAERS Safety Report 5234588-8 (Version None)
Quarter: 2007Q1

REPORT INFORMATION
  Report Type: 
  Country: None (occurrence: None)
  Receive Date: 20070209
  Receipt Date: 20070205
  Transmission Date: 20070707
  Serious: Yes (Death)
  Sender: FDA-Public Use
  Company Number: AU-JNJFOC-20070200925

PATIENT
  Sex: Male

DRUGS (4)
  1. TMC114 [Suspect]
     Route: 048
  2. TMC114 [Suspect]
     Indication: HIV INFECTION
     Route: 048
  3. ZIDOVUDINE [Suspect]
     Indication: HIV INFECTION
     Route: 048
  4. KALETRA [Concomitant]
     Indication: HIV INFECTION
     Route: 048

REACTIONS (1)
  - PANCREATITIS [None]
